FAERS Safety Report 6760125-2 (Version None)
Quarter: 2010Q2

REPORT INFORMATION
  Report Type: 
  Country: None (occurrence: None)
  Receive Date: 20100608
  Receipt Date: 20100603
  Transmission Date: 20101027
  Serious: Yes (Other)
  Sender: FDA-Public Use
  Company Number: JP-BRISTOL-MYERS SQUIBB COMPANY-15135221

PATIENT
  Age: 62 Year
  Sex: Male

DRUGS (1)
  1. AVAPRO [Suspect]

REACTIONS (1)
  - RHABDOMYOLYSIS [None]
